FAERS Safety Report 7497784-5 (Version None)
Quarter: 2011Q2

REPORT INFORMATION
  Report Type: 
  Country: None (occurrence: None)
  Receive Date: 20110524
  Receipt Date: 20090930
  Transmission Date: 20111010
  Serious: Yes (Other)
  Sender: FDA-Public Use
  Company Number: US-BAYER-200934521NA

PATIENT
  Age: 72 Year
  Sex: Male
  Weight: 76 kg

DRUGS (16)
  1. NITROGLYCERIN [Concomitant]
     Dosage: 0.2 MCG/MIN
     Dates: start: 20041024
  2. LISINOPRIL [Concomitant]
  3. TRASYLOL [Suspect]
     Indication: CORONARY ARTERY BYPASS
     Dosage: 100 ML, ONCE/PRIME
     Route: 042
     Dates: start: 20041024, end: 20041024
  4. TRASYLOL [Suspect]
     Dosage: 25 ML, Q1HR
     Route: 042
     Dates: start: 20041024, end: 20041024
  5. NEUROMAX [Concomitant]
  6. INSULIN [Concomitant]
     Dosage: 2 ML, Q1HR
     Route: 042
     Dates: start: 20041024
  7. PRINZIDE [Concomitant]
     Dosage: 10 MG, QD
     Route: 048
  8. DOPAMINE HCL [Concomitant]
     Dosage: 4 MCG/KG/MIN
     Route: 042
     Dates: start: 20041024
  9. CORDARONE [Concomitant]
     Dosage: 1 MG, Q1MIN
     Route: 042
     Dates: start: 20041024
  10. HEPARIN [Concomitant]
     Dosage: 100 U, Q1HR
     Route: 042
     Dates: start: 20041024
  11. RED BLOOD CELLS [Concomitant]
     Dosage: 1 U, UNK
     Route: 042
     Dates: start: 20041024
  12. CELEBREX [Concomitant]
  13. METOPROLOL SUCCINATE [Concomitant]
  14. VIOXX [Concomitant]
  15. TRASYLOL [Suspect]
     Dosage: 200 ML, ONCE/LOADING
     Route: 042
     Dates: start: 20041024, end: 20041024
  16. CONTRAST MEDIA [Concomitant]

REACTIONS (10)
  - UNEVALUABLE EVENT [None]
  - EMOTIONAL DISTRESS [None]
  - STRESS [None]
  - RENAL IMPAIRMENT [None]
  - RENAL INJURY [None]
  - RENAL FAILURE [None]
  - INJURY [None]
  - FEAR [None]
  - PAIN [None]
  - ANXIETY [None]
